FAERS Safety Report 24061662 (Version 1)
Quarter: 2024Q3

REPORT INFORMATION
  Report Type: Spontaneous
  Country: US (occurrence: None)
  Receive Date: 20240706
  Receipt Date: 20240706
  Transmission Date: 20241017
  Serious: Yes (Death)
  Sender: Public
  Company Number: None

PATIENT
  Age: 22 Year
  Sex: Female
  Weight: 53.8 kg

DRUGS (8)
  1. CLOZAPINE [Suspect]
     Active Substance: CLOZAPINE
     Indication: Schizophrenia
     Dosage: FREQUENCY : AT BEDTIME;?
     Route: 048
     Dates: start: 20240319
  2. OLANZAPINE [Suspect]
     Active Substance: OLANZAPINE
     Dosage: FREQUENCY : TWICE A DAY;?
     Route: 048
     Dates: start: 20240205
  3. acetaminophen 650 mg every 6 hours as needed for pain [Concomitant]
     Dates: start: 20240126, end: 20240324
  4. benztropine 1 mg twice daily [Concomitant]
     Dates: start: 20240201, end: 20240324
  5. hydroxyzine pamoate 25 mg every 6 hours as needed for anxiety [Concomitant]
     Dates: start: 20240126, end: 20240324
  6. ondansetron 4 mg every 4 hours as needed for nausea/vomiting [Concomitant]
     Dates: start: 20240126, end: 20240324
  7. polyethylene glycol 3350, 17 g dissolved in 8 ounces of beverage daily [Concomitant]
     Dates: start: 20240126, end: 20240324
  8. promethazine 25 mg every 6 hours as needed for nausea/vomiting [Concomitant]
     Dates: start: 20240210, end: 20240324

REACTIONS (5)
  - Megacolon [None]
  - Pain [None]
  - Nausea [None]
  - Vomiting [None]
  - Constipation [None]

NARRATIVE: CASE EVENT DATE: 20240324
